FAERS Safety Report 4873300-9 (Version None)
Quarter: 2006Q1

REPORT INFORMATION
  Report Type: 
  Country: None (occurrence: None)
  Receive Date: 20060105
  Receipt Date: 20051227
  Transmission Date: 20060701
  Serious: Yes (Death)
  Sender: FDA-Public Use
  Company Number: US-SANOFI-SYNTHELABO-A03200504430

PATIENT
  Sex: Female
  Weight: 54.42 kg

DRUGS (5)
  1. PLAVIX [Suspect]
     Indication: CORONARY ARTERY OCCLUSION
     Route: 048
  2. METFORMIN [Concomitant]
     Dosage: UNK
     Route: 048
  3. GLUCOTROL [Concomitant]
     Dosage: UNK
     Route: 048
  4. UNIVASC [Concomitant]
     Dosage: UNK
     Route: 048
  5. CENTRUM [Concomitant]
     Dosage: UNK
     Route: 048

REACTIONS (2)
  - DEATH [None]
  - PROCEDURAL COMPLICATION [None]
